FAERS Safety Report 7703432-9 (Version None)
Quarter: 2011Q3

REPORT INFORMATION
  Report Type: 
  Country: None (occurrence: None)
  Receive Date: 20110823
  Receipt Date: 20110823
  Transmission Date: 20111222
  Serious: Yes (Other)
  Sender: FDA-Public Use
  Company Number: None

PATIENT
  Age: 17 Year
  Sex: Female
  Weight: 81.646 kg

DRUGS (2)
  1. VIMPAT [Suspect]
     Indication: EPILEPSY
     Dosage: 200 MG
     Dates: start: 20091220, end: 20110822
  2. LAMICTAL [Suspect]
     Dosage: 250MG

REACTIONS (2)
  - ABDOMINAL DISCOMFORT [None]
  - VOMITING [None]
